FAERS Safety Report 8478124-1 (Version None)
Quarter: 2012Q2

REPORT INFORMATION
  Report Type: 
  Country: None (occurrence: None)
  Receive Date: 20120629
  Receipt Date: 20120626
  Transmission Date: 20120825
  Serious: Yes (Other)
  Sender: FDA-Public Use
  Company Number: AU-PFIZER INC-2011199906

PATIENT
  Sex: Male
  Weight: 3.46 kg

DRUGS (3)
  1. MAXOLON [Concomitant]
     Indication: VOMITING
     Dosage: 10MG DAILY
     Route: 064
     Dates: start: 20060529, end: 20060721
  2. EFFEXOR XR [Suspect]
     Indication: DEPRESSION
  3. EFFEXOR XR [Suspect]
     Indication: ANXIETY
     Dosage: 75MG DAILY
     Route: 064
     Dates: start: 20050601

REACTIONS (4)
  - PREMATURE BABY [None]
  - MATERNAL EXPOSURE TIMING UNSPECIFIED [None]
  - FOETAL DISTRESS SYNDROME [None]
  - DEVELOPMENTAL DELAY [None]
